FAERS Safety Report 25055845 (Version 2)
Quarter: 2025Q2

REPORT INFORMATION
  Report Type: Other
  Country: GB (occurrence: GB)
  Receive Date: 20250309
  Receipt Date: 20250430
  Transmission Date: 20250716
  Serious: Yes (Congenital Anomaly, Other)
  Sender: MACLEODS
  Company Number: GB-MACLEODS PHARMA-MAC2025052003

PATIENT

DRUGS (5)
  1. DOLUTEGRAVIR [Suspect]
     Active Substance: DOLUTEGRAVIR
     Indication: Product used for unknown indication
     Dosage: 1 COURSE OF TABS/CAP, NO PRIOR TO CONCEPTION, EXPOSURE DURING FIRST TRIMESTER, ONGOING
     Route: 064
     Dates: start: 20240708
  2. EMTRICITABINE\TENOFOVIR [Suspect]
     Active Substance: EMTRICITABINE\TENOFOVIR
     Indication: Product used for unknown indication
     Dosage: 1 COURSE OF TABS/CAP, NO PRIOR TO CONCEPTION, EXPOSURE DURING FIRST TRIMESTER AND ONGOING
     Route: 064
     Dates: start: 20240708
  3. DOLUTEGRAVIR\LAMIVUDINE\TENOFOVIR DISOPROXIL FUMARATE [Suspect]
     Active Substance: DOLUTEGRAVIR\LAMIVUDINE\TENOFOVIR DISOPROXIL FUMARATE
     Indication: Product used for unknown indication
     Dosage: 1 COURSE OF TABS/CAP, PRIOR TO CONCEPTION, EXPOSURE DURING ALL TRIMESTER
     Route: 064
     Dates: end: 20240708
  4. ASPIRIN [Suspect]
     Active Substance: ASPIRIN
     Indication: Product used for unknown indication
     Route: 064
  5. CYCLIZINE [Suspect]
     Active Substance: CYCLIZINE
     Indication: Product used for unknown indication
     Route: 064

REACTIONS (5)
  - Ventricular septal defect [Unknown]
  - Aorta hypoplasia [Unknown]
  - Dysmorphism [Unknown]
  - Chromosomal deletion [Unknown]
  - Foetal exposure during pregnancy [Unknown]
